FAERS Safety Report 12583186 (Version 1)
Quarter: 2016Q3

REPORT INFORMATION
  Report Type: Spontaneous
  Country: US (occurrence: US)
  Receive Date: 20160722
  Receipt Date: 20160722
  Transmission Date: 20161109
  Serious: No
  Sender: FDA-Public Use
  Company Number: US-GLAXOSMITHKLINE-US2016099794

PATIENT
  Sex: Male

DRUGS (10)
  1. LAMICTAL [Suspect]
     Active Substance: LAMOTRIGINE
     Indication: AFFECTIVE DISORDER
     Dosage: 200 MG, QD
     Route: 048
     Dates: start: 201603
  2. AMLODIPINE [Concomitant]
     Active Substance: AMLODIPINE BESYLATE
  3. CLONAZEPAM. [Concomitant]
     Active Substance: CLONAZEPAM
  4. LAMICTAL [Suspect]
     Active Substance: LAMOTRIGINE
     Dosage: 150 MG, QD
  5. LASIX [Concomitant]
     Active Substance: FUROSEMIDE
  6. NASALCROM [Concomitant]
     Active Substance: CROMOLYN SODIUM
  7. ASPIRIN (BABY) [Concomitant]
     Active Substance: ASPIRIN
  8. TEKTURNA [Concomitant]
     Active Substance: ALISKIREN HEMIFUMARATE
  9. ATORVASTATIN [Concomitant]
     Active Substance: ATORVASTATIN
  10. OMEPRAZOLE. [Concomitant]
     Active Substance: OMEPRAZOLE

REACTIONS (1)
  - Blood creatinine increased [Unknown]

NARRATIVE: CASE EVENT DATE: 2016
